FAERS Safety Report 10112349 (Version 2)
Quarter: 2014Q2

REPORT INFORMATION
  Report Type: Spontaneous
  Country: US (occurrence: US)
  Receive Date: 20140425
  Receipt Date: 20140602
  Transmission Date: 20141212
  Serious: No
  Sender: FDA-Public Use
  Company Number: US-009507513-1404USA011756

PATIENT
  Age: 71 Year
  Sex: Female

DRUGS (4)
  1. FOSAMAX [Suspect]
     Indication: OSTEOPOROSIS
     Dosage: 70 MG, QW
     Route: 048
     Dates: start: 20140107, end: 20140114
  2. ZOLOFT [Concomitant]
  3. LISINOPRIL [Concomitant]
  4. MOTRIN [Concomitant]

REACTIONS (3)
  - Pain [Not Recovered/Not Resolved]
  - Pain [Not Recovered/Not Resolved]
  - Tooth extraction [Unknown]
